FAERS Safety Report 9728964 (Version 2)
Quarter: 2013Q4

REPORT INFORMATION
  Report Type: Spontaneous
  Country: US (occurrence: US)
  Receive Date: 20131204
  Receipt Date: 20131204
  Transmission Date: 20140711
  Serious: Yes (Other)
  Sender: FDA-Public Use
  Company Number: US-ALLERGAN-1318704US

PATIENT
  Age: 44 Year
  Sex: Female

DRUGS (1)
  1. BOTOX [Suspect]
     Indication: MIGRAINE
     Dosage: UNK, SINGLE
     Route: 030
     Dates: start: 20130802, end: 20130802

REACTIONS (8)
  - Choking [Unknown]
  - Arrhythmia [Not Recovered/Not Resolved]
  - Dyspnoea [Unknown]
  - Aphonia [Recovering/Resolving]
  - Upper respiratory tract infection [Unknown]
  - Gastrooesophageal reflux disease [Not Recovered/Not Resolved]
  - Dry mouth [Unknown]
  - Dysphagia [Unknown]
